FAERS Safety Report 21873069 (Version 2)
Quarter: 2023Q4

REPORT INFORMATION
  Report Type: Report from Study
  Country: US (occurrence: US)
  Receive Date: 20230117
  Receipt Date: 20231206
  Transmission Date: 20240109
  Serious: Yes (Other)
  Sender: FDA-Public Use
  Company Number: US-002147023-NVSC2023US007879

PATIENT
  Sex: Female

DRUGS (1)
  1. MAYZENT [Suspect]
     Active Substance: SIPONIMOD
     Indication: Multiple sclerosis
     Dosage: 2 MG
     Route: 048

REACTIONS (5)
  - Multiple sclerosis [Unknown]
  - Spinal fracture [Unknown]
  - Neck injury [Unknown]
  - Fall [Unknown]
  - Hypoacusis [Unknown]
